FAERS Safety Report 5627143-9 (Version None)
Quarter: 2008Q1

REPORT INFORMATION
  Report Type: 
  Country: None (occurrence: None)
  Receive Date: 20080211
  Receipt Date: 20080211
  Transmission Date: 20080703
  Serious: Yes (Death)
  Sender: FDA-Public Use
  Company Number: None

PATIENT
  Age: 78 Year
  Sex: Female
  Weight: 52.1637 kg

DRUGS (1)
  1. HEPARIN [Suspect]

REACTIONS (9)
  - ABDOMINAL PAIN [None]
  - APPENDICECTOMY [None]
  - ARRHYTHMIA [None]
  - CHOLELITHIASIS [None]
  - DIARRHOEA [None]
  - HYPOTENSION [None]
  - NAUSEA [None]
  - SEPSIS [None]
  - VOMITING [None]
